FAERS Safety Report 14690053 (Version 1)
Quarter: 2018Q1

REPORT INFORMATION
  Report Type: Spontaneous
  Country: CH (occurrence: CH)
  Receive Date: 20180328
  Receipt Date: 20180328
  Transmission Date: 20180509
  Serious: Yes (Hospitalization)
  Sender: FDA-Public Use
  Company Number: CH-TEVA-2018-CH-872270

PATIENT
  Age: 82 Year
  Sex: Male

DRUGS (15)
  1. SPASMO-CANULASE [Concomitant]
     Active Substance: AMYLASE\CELLULASE\GLUTAMIC ACID HYDROCHLORIDE\PANCRELIPASE\PEPSIN\PROTEASE
     Route: 048
  2. IBUPROFEN ACTAVIS [Suspect]
     Active Substance: IBUPROFEN
     Route: 048
     Dates: start: 20161226, end: 20170106
  3. TORASEMIDE [Suspect]
     Active Substance: TORSEMIDE
     Route: 048
  4. SERESTA [Concomitant]
     Active Substance: OXAZEPAM
     Route: 048
  5. DAFALGAN ODIS [Concomitant]
     Active Substance: ACETAMINOPHEN
     Route: 048
  6. TEMESTA (LORAZEPAM) [Concomitant]
     Active Substance: LORAZEPAM
     Route: 048
  7. FLATULEX [Concomitant]
     Active Substance: ACTIVATED CHARCOAL\DIMETHICONE
     Route: 048
  8. CO LOSARTAN /01121602/ [Suspect]
     Active Substance: LOSARTAN
     Route: 048
  9. TRAMADOL MEPHA [Concomitant]
     Active Substance: TRAMADOL HYDROCHLORIDE
     Route: 048
  10. PANTOZOL [Concomitant]
     Active Substance: PANTOPRAZOLE SODIUM
     Route: 048
  11. LOPERAMID-MEPHA 2 LACTAB [Concomitant]
     Route: 048
  12. RELAXANE [Concomitant]
     Route: 048
  13. MEFENACID [Suspect]
     Active Substance: MEFENAMIC ACID
     Route: 048
  14. ASPIRIN CARDIO 100 FILMTABLETTEN [Suspect]
     Active Substance: ASPIRIN
     Route: 048
  15. ZELLER SCHLAF [Concomitant]
     Route: 048

REACTIONS (1)
  - Acute kidney injury [Recovering/Resolving]

NARRATIVE: CASE EVENT DATE: 20170105
